FAERS Safety Report 5144054-6 (Version None)
Quarter: 2006Q4

REPORT INFORMATION
  Report Type: 
  Country: None (occurrence: None)
  Receive Date: 20061106
  Receipt Date: 20061027
  Transmission Date: 20070319
  Serious: Yes (Life-Threatening, Hospitalization)
  Sender: FDA-Public Use
  Company Number: AR-GLAXOSMITHKLINE-A0625472A

PATIENT
  Age: 31 Year
  Sex: Male

DRUGS (3)
  1. LAMOTRIGINE [Suspect]
     Dosage: 100MG PER DAY
     Route: 048
     Dates: start: 20060920, end: 20061020
  2. CLOZAPINE [Concomitant]
     Dosage: 200MG PER DAY
     Route: 048
     Dates: start: 20050501
  3. CITALOPRAM HYDROBROMIDE [Concomitant]
     Dates: start: 20060801

REACTIONS (1)
  - HYPOGLYCAEMIA [None]
